FAERS Safety Report 7925860 (Version 2)
Quarter: 2014Q1

REPORT INFORMATION
  Report Type: Report from Study
  Country: US (occurrence: US)
  Receive Date: 20110502
  Receipt Date: 20140109
  Transmission Date: 20141002
  Serious: No
  Sender: FDA-Public Use
  Company Number: US-ASTRAZENECA-2010SE43728

PATIENT
  Age: 63 Year
  Sex: Female
  Weight: 99.8 kg

DRUGS (3)
  1. NEXIUM [Suspect]
     Indication: NEOPLASM PROPHYLAXIS
     Route: 048
     Dates: start: 2002, end: 201310
  2. NEXIUM [Suspect]
     Indication: BARRETT^S OESOPHAGUS
     Route: 048
     Dates: start: 2002, end: 201310
  3. ATENOLOL [Suspect]
     Indication: ATRIAL FIBRILLATION
     Route: 048

REACTIONS (10)
  - Back pain [Unknown]
  - Pain [Unknown]
  - Dysphagia [Unknown]
  - Dysgraphia [Unknown]
  - Chest pain [Not Recovered/Not Resolved]
  - Malaise [Unknown]
  - Malaise [Not Recovered/Not Resolved]
  - Vomiting [Unknown]
  - Off label use [Unknown]
  - Drug dose omission [Not Recovered/Not Resolved]
